FAERS Safety Report 9815677 (Version 1)
Quarter: 2014Q1

REPORT INFORMATION
  Report Type: Spontaneous
  Country: CA (occurrence: None)
  Receive Date: 20140110
  Receipt Date: 20140110
  Transmission Date: 20141002
  Serious: Yes (Other)
  Sender: FDA-Public Use
  Company Number: 2013P1022412

PATIENT
  Age: 60 Year
  Sex: Male
  Weight: 61.1 kg

DRUGS (15)
  1. NEVIRAPINE [Suspect]
     Indication: ACUTE HIV INFECTION
  2. RIVAROXABAN [Suspect]
     Indication: KNEE ARTHROPLASTY
  3. LAMIVUDINE [Concomitant]
  4. ZIDOVUDINE [Concomitant]
  5. AMLODIPINE [Concomitant]
  6. METOPROLOL [Concomitant]
  7. LISINOPRIL [Concomitant]
  8. HYDROCHLOROTHIAZIDE [Concomitant]
  9. ATORVASTATIN [Concomitant]
  10. ACETYLSALICYLIC [Concomitant]
  11. CELECOXIB [Concomitant]
  12. OMEPRAZOLE [Concomitant]
  13. GABAPENTIN [Concomitant]
  14. LAMOTRIGINE [Concomitant]
  15. DALTEPARIN [Concomitant]

REACTIONS (14)
  - Chest pain [None]
  - Local swelling [None]
  - Cardiac murmur [None]
  - Venous pressure jugular increased [None]
  - Deep vein thrombosis [None]
  - Sinus tachycardia [None]
  - Electrocardiogram ST-T change [None]
  - Mitral valve incompetence [None]
  - Tricuspid valve incompetence [None]
  - International normalised ratio increased [None]
  - Drug interaction [None]
  - Pulmonary embolism [None]
  - Troponin T increased [None]
  - Body temperature increased [None]
